FAERS Safety Report 17772773 (Version 2)
Quarter: 2020Q3

REPORT INFORMATION
  Report Type: Report from Study
  Country: TR (occurrence: TR)
  Receive Date: 20200512
  Receipt Date: 20200715
  Transmission Date: 20201102
  Serious: Yes (Other)
  Sender: FDA-Public Use
  Company Number: TR-CHIESI USA, INC.-TR-2020CHI000263

PATIENT

DRUGS (1)
  1. CUROSURF [Suspect]
     Active Substance: PORACTANT ALFA
     Indication: NEONATAL RESPIRATORY DISTRESS SYNDROME
     Dosage: UNK
     Route: 065

REACTIONS (5)
  - Intraventricular haemorrhage neonatal [Unknown]
  - Sepsis neonatal [Unknown]
  - Meningitis neonatal [Unknown]
  - Poor feeding infant [Unknown]
  - Infantile apnoea [Unknown]
